FAERS Safety Report 4370587-6 (Version None)
Quarter: 2004Q2

REPORT INFORMATION
  Report Type: 
  Country: None (occurrence: None)
  Receive Date: 20040601
  Receipt Date: 20040503
  Transmission Date: 20050107
  Serious: Yes (Other)
  Sender: FDA-Public Use
  Company Number: USA040566480

PATIENT
  Sex: Male

DRUGS (3)
  1. ALIMTA [Suspect]
     Indication: PLEURAL MESOTHELIOMA MALIGNANT
     Dosage: 500 MG/M2
     Dates: start: 20040429
  2. CISPLATNI [Concomitant]
  3. FOLIC ACID [Concomitant]

REACTIONS (2)
  - BLOOD CREATININE INCREASED [None]
  - URINE OUTPUT DECREASED [None]
